FAERS Safety Report 23332301 (Version 1)
Quarter: 2023Q4

REPORT INFORMATION
  Report Type: Spontaneous
  Country: US (occurrence: None)
  Receive Date: 20231010
  Receipt Date: 20231010
  Transmission Date: 20240110
  Serious: Yes (Hospitalization)
  Sender: FDA-Public Use
  Company Number: None

PATIENT
  Age: 45 Year
  Sex: Female

DRUGS (2)
  1. ALCOHOL [Suspect]
     Active Substance: ALCOHOL
  2. ENBREL [Suspect]
     Active Substance: ETANERCEPT

REACTIONS (2)
  - Gastrointestinal infection [None]
  - Therapy interrupted [None]
